FAERS Safety Report 14804565 (Version 1)
Quarter: 2018Q2

REPORT INFORMATION
  Report Type: Spontaneous
  Country: NL (occurrence: NL)
  Receive Date: 20180425
  Receipt Date: 20180425
  Transmission Date: 20180711
  Serious: Yes (Other)
  Sender: FDA-Public Use
  Company Number: NL-ASTELLAS-2018US019228

PATIENT
  Age: 39 Year
  Sex: Female

DRUGS (4)
  1. ALEMTUZUMAB [Concomitant]
     Active Substance: ALEMTUZUMAB
     Indication: RENAL AND PANCREAS TRANSPLANT
     Route: 058
  2. METHYLPREDNISOLONE. [Concomitant]
     Active Substance: METHYLPREDNISOLONE
     Indication: RENAL AND PANCREAS TRANSPLANT
     Route: 042
  3. MYCOPHENOLATE MOFETIL. [Concomitant]
     Active Substance: MYCOPHENOLATE MOFETIL
     Indication: RENAL AND PANCREAS TRANSPLANT
     Dosage: UNK UNK, UNKNOWN FREQ.
     Route: 065
  4. TACROLIMUS. [Suspect]
     Active Substance: TACROLIMUS
     Indication: RENAL AND PANCREAS TRANSPLANT
     Dosage: UNK UNK, UNKNOWN FREQ.
     Route: 065

REACTIONS (12)
  - Infective aneurysm [Unknown]
  - Anastomotic haemorrhage [Unknown]
  - Pancreatitis [Unknown]
  - Iron deficiency anaemia [Recovered/Resolved]
  - Pseudomonas infection [Unknown]
  - Intra-abdominal fluid collection [Recovered/Resolved]
  - Pancreatic necrosis [Unknown]
  - Bacterial infection [Unknown]
  - Off label use [Unknown]
  - Hypovolaemic shock [Unknown]
  - Peripancreatic fluid collection [Unknown]
  - Enterococcal infection [Unknown]
